FAERS Safety Report 20187654 (Version 1)
Quarter: 2021Q4

REPORT INFORMATION
  Report Type: Spontaneous
  Country: US (occurrence: US)
  Receive Date: 20211215
  Receipt Date: 20211215
  Transmission Date: 20220303
  Serious: Yes (Other)
  Sender: FDA-Public Use
  Company Number: US-PFIZER INC-202101281766

PATIENT
  Age: 69 Year
  Sex: Female

DRUGS (2)
  1. IBRANCE [Suspect]
     Active Substance: PALBOCICLIB
     Dosage: 125 MG
     Dates: start: 20200531
  2. IBRANCE [Suspect]
     Active Substance: PALBOCICLIB
     Dosage: 125 MG
     Dates: start: 20210209

REACTIONS (9)
  - Pneumonia [Unknown]
  - Asthenia [Unknown]
  - Sluggishness [Unknown]
  - Feeling of body temperature change [Unknown]
  - Abdominal discomfort [Unknown]
  - Dyspnoea [Unknown]
  - Diarrhoea [Unknown]
  - Weight decreased [Unknown]
  - Colitis [Unknown]
